FAERS Safety Report 9192884 (Version 1)
Quarter: 2013Q1

REPORT INFORMATION
  Report Type: Spontaneous
  Country: US (occurrence: None)
  Receive Date: 20130325
  Receipt Date: 20130325
  Transmission Date: 20140127
  Serious: No
  Sender: FDA-Public Use
  Company Number: None

PATIENT
  Sex: 0

DRUGS (2)
  1. KETOROLAC TROMETHAMINE [Suspect]
     Dosage: INJECTABLE FORM, INJECTION ROUTE, 30MG/ML, SINGLE DOSE VIAL, 1 ML
     Route: 050
  2. ATROPINE [Suspect]
     Dosage: INJECTABLE FORM, INJECTION ROUTE, 1 MG/ML
     Route: 050

REACTIONS (1)
  - Circumstance or information capable of leading to medication error [None]
